FAERS Safety Report 5258413-4 (Version None)
Quarter: 2007Q1

REPORT INFORMATION
  Report Type: 
  Country: None (occurrence: None)
  Receive Date: 20070305
  Receipt Date: 20070216
  Transmission Date: 20070707
  Serious: Yes (Other)
  Sender: FDA-Public Use
  Company Number: 2007RR-05875

PATIENT
  Age: 18 Month
  Sex: Male
  Weight: 10.5 kg

DRUGS (2)
  1. IBUPROFEN [Suspect]
     Dosage: 2.5 ML
  2. PARACETAMOL (ACETAMINOPHEN/PARACETAMOL) UNKNOWN [Concomitant]

REACTIONS (7)
  - DEHYDRATION [None]
  - PERITONEAL DIALYSIS [None]
  - RENAL FAILURE ACUTE [None]
  - RENAL TUBULAR NECROSIS [None]
  - SOMNOLENCE [None]
  - TACHYPNOEA [None]
  - WHEEZING [None]
